FAERS Safety Report 7900011-5 (Version None)
Quarter: 2011Q4

REPORT INFORMATION
  Report Type: 
  Country: None (occurrence: None)
  Receive Date: 20111107
  Receipt Date: 20111026
  Transmission Date: 20120403
  Serious: No
  Sender: FDA-Public Use
  Company Number: US-B.I. PHARMACEUTICALS,INC./RIDGEFIELD-2011-BP-22504BP

PATIENT
  Sex: Female

DRUGS (10)
  1. POTASSIUM [Concomitant]
     Indication: SUPPLEMENTATION THERAPY
     Dosage: 10 MEQ
     Route: 048
  2. PRADAXA [Suspect]
     Indication: DEEP VEIN THROMBOSIS
     Dosage: 300 MG
     Route: 048
     Dates: start: 20110701, end: 20111003
  3. D3 MAX [Concomitant]
     Indication: SUPPLEMENTATION THERAPY
     Route: 048
  4. OMEPRAZOLE [Concomitant]
     Indication: GASTROOESOPHAGEAL REFLUX DISEASE
     Dosage: 20 MG
     Route: 048
  5. MULTIVITAMIN [Concomitant]
     Indication: SUPPLEMENTATION THERAPY
     Route: 048
  6. VERAPAMIL [Concomitant]
     Indication: HYPERTENSION
     Dosage: 180 MG
     Route: 048
     Dates: start: 20110701, end: 20110913
  7. FUROSEMIDE [Concomitant]
     Indication: HYPERTENSION
     Dosage: 40 MG
     Route: 048
  8. PERPHEN [Concomitant]
  9. CELEBREX [Concomitant]
     Indication: ARTHRITIS
     Dosage: 200 MG
     Route: 048
  10. VERAPAMIL [Concomitant]
     Dosage: 120 MG
     Route: 048
     Dates: start: 20110913

REACTIONS (9)
  - BLOOD PRESSURE INCREASED [None]
  - OEDEMA PERIPHERAL [None]
  - HEAD INJURY [None]
  - JOINT SWELLING [None]
  - CONCUSSION [None]
  - FALL [None]
  - ASTHENIA [None]
  - DIZZINESS [None]
  - HYPOTENSION [None]
